FAERS Safety Report 10196273 (Version 1)
Quarter: 2014Q2

REPORT INFORMATION
  Report Type: Spontaneous
  Country: US (occurrence: US)
  Receive Date: 20140527
  Receipt Date: 20140527
  Transmission Date: 20141212
  Serious: No
  Sender: FDA-Public Use
  Company Number: US-JNJFOC-20140513175

PATIENT
  Sex: Female

DRUGS (7)
  1. INVEGA [Suspect]
     Indication: PRODUCT USED FOR UNKNOWN INDICATION
     Route: 048
  2. INVEGA [Suspect]
     Indication: PRODUCT USED FOR UNKNOWN INDICATION
     Route: 048
     Dates: start: 201101
  3. INVEGA [Suspect]
     Indication: PRODUCT USED FOR UNKNOWN INDICATION
     Route: 048
     Dates: start: 2009, end: 201101
  4. ABILIFY [Concomitant]
     Route: 065
     Dates: start: 2009
  5. ADDERALL XR [Concomitant]
     Route: 065
     Dates: start: 2009
  6. VALIUM [Concomitant]
     Route: 065
     Dates: start: 2009
  7. LITHIUM [Concomitant]
     Route: 065
     Dates: start: 2009

REACTIONS (1)
  - Adverse event [Unknown]
